FAERS Safety Report 25744860 (Version 1)
Quarter: 2025Q3

REPORT INFORMATION
  Report Type: Spontaneous
  Country: US (occurrence: US)
  Receive Date: 20250901
  Receipt Date: 20250901
  Transmission Date: 20251020
  Serious: Yes (Hospitalization, Other)
  Sender: HIKMA
  Company Number: US-HIKMA PHARMACEUTICALS USA INC.-US-H14001-25-09791

PATIENT
  Sex: Female

DRUGS (7)
  1. INGREZZA [Suspect]
     Active Substance: VALBENAZINE DITOSYLATE
     Indication: Tardive dyskinesia
     Route: 065
  2. INGREZZA [Suspect]
     Active Substance: VALBENAZINE DITOSYLATE
     Route: 065
  3. INGREZZA [Suspect]
     Active Substance: VALBENAZINE DITOSYLATE
     Route: 065
  4. INGREZZA [Suspect]
     Active Substance: VALBENAZINE DITOSYLATE
     Route: 065
  5. INGREZZA [Suspect]
     Active Substance: VALBENAZINE DITOSYLATE
     Route: 065
  6. LITHIUM [Suspect]
     Active Substance: LITHIUM
     Indication: Suicidal ideation
     Route: 065
  7. LITHIUM [Suspect]
     Active Substance: LITHIUM
     Indication: Bipolar disorder

REACTIONS (2)
  - Hospitalisation [Unknown]
  - Movement disorder [Unknown]
